FAERS Safety Report 13247205 (Version 1)
Quarter: 2017Q1

REPORT INFORMATION
  Report Type: Spontaneous
  Country: US (occurrence: US)
  Receive Date: 20170217
  Receipt Date: 20170217
  Transmission Date: 20170428
  Serious: No
  Sender: FDA-Public Use
  Company Number: US-PERRIGO-16US019027

PATIENT
  Age: 18 Month
  Sex: Male

DRUGS (1)
  1. CETIRIZINE HYDROCHLORIDE. [Suspect]
     Active Substance: CETIRIZINE HYDROCHLORIDE
     Indication: ACCIDENTAL EXPOSURE TO PRODUCT BY CHILD
     Dosage: 30 TO 40 MG, SINGLE
     Route: 048
     Dates: start: 20160810, end: 20160810

REACTIONS (1)
  - Accidental exposure to product [Recovered/Resolved]

NARRATIVE: CASE EVENT DATE: 20160810
